FAERS Safety Report 7634182-5 (Version None)
Quarter: 2011Q3

REPORT INFORMATION
  Report Type: 
  Country: None (occurrence: None)
  Receive Date: 20110725
  Receipt Date: 20110714
  Transmission Date: 20111222
  Serious: Yes (Hospitalization)
  Sender: FDA-Public Use
  Company Number: US-ASTRAZENECA-2011SE30333

PATIENT
  Age: 63 Year
  Sex: Female
  Weight: 101.2 kg

DRUGS (14)
  1. ASA/BUFFERS [Concomitant]
  2. LOPID [Concomitant]
  3. DIABETIC MED [Concomitant]
  4. CRESTOR [Suspect]
     Route: 048
  5. ZOLOFT [Concomitant]
  6. ACTOS [Concomitant]
  7. GABAPENTIN [Concomitant]
  8. BUSPIRONE HCL [Concomitant]
  9. COLACE [Concomitant]
  10. XANAX [Concomitant]
  11. METFORMIN [Concomitant]
  12. PLAVIX [Concomitant]
  13. COUMADIN [Concomitant]
  14. FOLIC ACID [Concomitant]

REACTIONS (1)
  - MYOCARDIAL INFARCTION [None]
